FAERS Safety Report 6209667-9 (Version None)
Quarter: 2009Q2

REPORT INFORMATION
  Report Type: 
  Country: None (occurrence: None)
  Receive Date: 20090601
  Receipt Date: 20070719
  Transmission Date: 20091009
  Serious: Yes (Other)
  Sender: FDA-Public Use
  Company Number: US-ASTRAZENECA-2006UW22293

PATIENT
  Age: 17599 Day
  Sex: Female
  Weight: 90.7 kg

DRUGS (16)
  1. SEROQUEL [Suspect]
     Indication: ANXIETY
     Route: 048
     Dates: start: 20020803
  2. NAVANE [Concomitant]
  3. RISPERDAL [Concomitant]
  4. KLONOPIN [Concomitant]
  5. ZOLOFT [Concomitant]
  6. METFORMIN HCL [Concomitant]
     Dates: start: 20060418
  7. COZAAR [Concomitant]
     Dosage: 50 - 75 MG
     Dates: start: 20060418
  8. LIPITOR [Concomitant]
     Dates: start: 20060418
  9. GLUCOTROL [Concomitant]
     Dosage: 5 - 10 MG
     Dates: start: 20060418
  10. PAXIL [Concomitant]
     Dates: start: 20000519
  11. DEPAKOTE [Concomitant]
     Dates: start: 20010424
  12. FLUPHENAZINE [Concomitant]
     Dates: start: 20060418
  13. CLONAZEPAM [Concomitant]
     Dates: start: 20001124
  14. ZANAFLEX [Concomitant]
     Dates: start: 20060420
  15. HALDOL [Concomitant]
     Dates: start: 20010425
  16. COGENTIN [Concomitant]
     Dates: start: 20010425

REACTIONS (4)
  - DIABETES MELLITUS [None]
  - MULTIPLE INJURIES [None]
  - NEUROPATHY PERIPHERAL [None]
  - TARDIVE DYSKINESIA [None]
